FAERS Safety Report 15760221 (Version 9)
Quarter: 2021Q4

REPORT INFORMATION
  Report Type: Spontaneous
  Country: US (occurrence: US)
  Receive Date: 20181226
  Receipt Date: 20211108
  Transmission Date: 20220303
  Serious: No
  Sender: FDA-Public Use
  Company Number: US-PFIZER INC-2018527455

PATIENT
  Age: 56 Year
  Sex: Female

DRUGS (2)
  1. LYRICA [Suspect]
     Active Substance: PREGABALIN
     Indication: Type 2 diabetes mellitus
     Dosage: 200 MG, 3X/DAY (200 MG, THREE TIMES A DAY)
     Route: 048
  2. LYRICA [Suspect]
     Active Substance: PREGABALIN
     Indication: Diabetic neuropathy
     Dosage: 200MG, THREE TIMES A DAY AS NEEDED
     Route: 048

REACTIONS (5)
  - Off label use [Unknown]
  - Off label use [Unknown]
  - Burning sensation [Unknown]
  - Pain [Unknown]
  - Gait inability [Unknown]
